FAERS Safety Report 25979565 (Version 1)
Quarter: 2025Q4

REPORT INFORMATION
  Report Type: Spontaneous
  Country: US (occurrence: US)
  Receive Date: 20251030
  Receipt Date: 20251030
  Transmission Date: 20260117
  Serious: No
  Sender: ROCHE
  Company Number: US-ROCHE-10000419530

PATIENT
  Age: 14 Year
  Sex: Male

DRUGS (4)
  1. XOLAIR [Suspect]
     Active Substance: OMALIZUMAB
     Indication: Chronic spontaneous urticaria
     Route: 065
  2. CYCLOSPORINE [Concomitant]
     Active Substance: CYCLOSPORINE
  3. DUPIXENT [Concomitant]
     Active Substance: DUPILUMAB
  4. REMIBRUTINIB [Concomitant]
     Active Substance: REMIBRUTINIB

REACTIONS (2)
  - Drug ineffective [Unknown]
  - No adverse event [Unknown]
